FAERS Safety Report 9101772 (Version 1)
Quarter: 2013Q1

REPORT INFORMATION
  Report Type: Spontaneous
  Country: US (occurrence: None)
  Receive Date: 20130220
  Receipt Date: 20130220
  Transmission Date: 20140127
  Serious: Yes (Hospitalization)
  Sender: FDA-Public Use
  Company Number: None

PATIENT
  Age: 55 Year
  Sex: Female
  Weight: 99.79 kg

DRUGS (1)
  1. ALTEPLASE [Suspect]
     Indication: INTRAVENOUS CATHETER MANAGEMENT

REACTIONS (1)
  - Infusion site extravasation [None]
